FAERS Safety Report 24557098 (Version 7)
Quarter: 2025Q1

REPORT INFORMATION
  Report Type: Spontaneous
  Country: CZ (occurrence: CZ)
  Receive Date: 20241028
  Receipt Date: 20250107
  Transmission Date: 20250408
  Serious: No
  Sender: AUROBINDO
  Company Number: CZ-AUROBINDO-AUR-APL-2024-051933

PATIENT
  Age: 63 Year
  Sex: Male

DRUGS (8)
  1. DOXAZOSIN [Suspect]
     Active Substance: DOXAZOSIN MESYLATE
     Indication: Hypertension
     Dosage: 4 MILLIGRAM, TWO TIMES A DAY (1-0-1 )
     Route: 065
     Dates: start: 202401
  2. LOSARTAN [Suspect]
     Active Substance: LOSARTAN
     Indication: Hypertension
     Dosage: 50 MILLIGRAM, ONCE A DAY
     Route: 065
     Dates: start: 202401
  3. AMLODIPINE [Suspect]
     Active Substance: AMLODIPINE BESYLATE
     Indication: Hypertension
     Dosage: 5 MILLIGRAM, ONCE A DAY
     Route: 065
     Dates: start: 202401
  4. RILMENIDINE [Suspect]
     Active Substance: RILMENIDINE
     Indication: Hypertension
     Dosage: 1 GRAM, ONCE A DAY
     Route: 065
     Dates: start: 202401
  5. ATENOLOL [Suspect]
     Active Substance: ATENOLOL
     Indication: Hypertension
     Dosage: 50 MILLIGRAM, ONCE A DAY
     Route: 065
     Dates: start: 202401
  6. POTASSIUM CHLORIDE [Suspect]
     Active Substance: POTASSIUM CHLORIDE
     Indication: Hypertension
     Dosage: UNK, ONCE A DAY
     Route: 065
     Dates: start: 202401
  7. GLIQUIDONE [Concomitant]
     Active Substance: GLIQUIDONE
     Indication: Type 2 diabetes mellitus
     Dosage: 30 MILLIGRAM, TWO TIMES A DAY
     Route: 065
     Dates: start: 202401
  8. METFORMIN [Concomitant]
     Active Substance: METFORMIN HYDROCHLORIDE
     Indication: Type 2 diabetes mellitus
     Dosage: 1000 MILLIGRAM, ONCE A DAY
     Route: 065
     Dates: start: 202401

REACTIONS (7)
  - Drug ineffective [Unknown]
  - Therapy partial responder [Unknown]
  - Peripheral swelling [Recovered/Resolved]
  - Sleep apnoea syndrome [Unknown]
  - Oxygen saturation [Unknown]
  - Oedema peripheral [Recovered/Resolved]
  - Therapeutic product effect incomplete [Recovered/Resolved]
